FAERS Safety Report 24079091 (Version 1)
Quarter: 2024Q3

REPORT INFORMATION
  Report Type: Report from Study
  Country: US (occurrence: US)
  Receive Date: 20240711
  Receipt Date: 20240711
  Transmission Date: 20241016
  Serious: Yes (Other)
  Sender: PFIZER
  Company Number: US-PFIZER INC-PV202400089942

PATIENT
  Age: 34 Year
  Sex: Male

DRUGS (4)
  1. METHOTREXATE SODIUM [Suspect]
     Active Substance: METHOTREXATE SODIUM
     Indication: Plasmablastic lymphoma
     Dosage: UNK, CYCLIC (1 CYCLE)
  2. METHOTREXATE SODIUM [Suspect]
     Active Substance: METHOTREXATE SODIUM
     Indication: Epstein-Barr virus associated lymphoma
  3. ZIDOVUDINE [Suspect]
     Active Substance: ZIDOVUDINE
     Indication: Plasmablastic lymphoma
     Dosage: UNK, CYCLIC (1 CYCLE)
  4. ZIDOVUDINE [Suspect]
     Active Substance: ZIDOVUDINE
     Indication: Epstein-Barr virus associated lymphoma

REACTIONS (2)
  - Mucosal inflammation [Unknown]
  - Diarrhoea [Unknown]
